FAERS Safety Report 21630328 (Version 2)
Quarter: 2022Q4

REPORT INFORMATION
  Report Type: Spontaneous
  Country: GB (occurrence: None)
  Receive Date: 20221122
  Receipt Date: 20221209
  Transmission Date: 20230112
  Serious: Yes (Disabling)
  Sender: FDA-Public Use
  Company Number: GB-ROCHE-3222936

PATIENT
  Age: 78 Year
  Sex: Female

DRUGS (1)
  1. HERCEPTIN [Suspect]
     Active Substance: TRASTUZUMAB
     Indication: Product used for unknown indication
     Dosage: CYCLE 12
     Route: 058
     Dates: start: 202202

REACTIONS (1)
  - Cataract [Unknown]
